FAERS Safety Report 6273308-5 (Version None)
Quarter: 2009Q3

REPORT INFORMATION
  Report Type: 
  Country: None (occurrence: None)
  Receive Date: 20090720
  Receipt Date: 20090709
  Transmission Date: 20100115
  Serious: Yes (Hospitalization)
  Sender: FDA-Public Use
  Company Number: JP-ROCHE-643975

PATIENT
  Age: 52 Year
  Sex: Male

DRUGS (2)
  1. ROCEPHIN [Suspect]
     Indication: INFECTION
     Dosage: ROUTE: INTRAVENOUS DRIP.
     Route: 042
     Dates: start: 20090422, end: 20090505
  2. CLINDAMYCIN [Suspect]
     Indication: DRUG USE FOR UNKNOWN INDICATION
     Dosage: NAME: CLINDAMYCIN (CLINDAMYCIN PHOSPHATE). ROUTE: INTRAVENOUS DRIP.
     Route: 041

REACTIONS (1)
  - PANCYTOPENIA [None]
